FAERS Safety Report 19465159 (Version 1)
Quarter: 2021Q2

REPORT INFORMATION
  Report Type: Report from Study
  Country: US (occurrence: US)
  Receive Date: 20210627
  Receipt Date: 20210627
  Transmission Date: 20210717
  Serious: Yes (Other)
  Sender: FDA-Public Use
  Company Number: US-UCBSA-2021029457

PATIENT
  Sex: Male

DRUGS (1)
  1. BRIVARACETAM [Suspect]
     Active Substance: BRIVARACETAM
     Indication: SEIZURE
     Dosage: 75 MILLIGRAM, 2X/DAY (BID)

REACTIONS (3)
  - Hypoacusis [Not Recovered/Not Resolved]
  - Brain operation [Not Recovered/Not Resolved]
  - Memory impairment [Not Recovered/Not Resolved]
